FAERS Safety Report 17591213 (Version 1)
Quarter: 2020Q1

REPORT INFORMATION
  Report Type: Spontaneous
  Country: DE (occurrence: DE)
  Receive Date: 20200327
  Receipt Date: 20200327
  Transmission Date: 20200409
  Serious: Yes (Life-Threatening, Other)
  Sender: FDA-Public Use
  Company Number: DE-PFIZER INC-2020128709

PATIENT
  Age: 42 Year
  Sex: Female
  Weight: 65 kg

DRUGS (2)
  1. CYTOTEC [Suspect]
     Active Substance: MISOPROSTOL
     Indication: LABOUR INDUCTION
     Dosage: DAY 1: 1 TABLET IN THE MORNING, NOON AND EVENING
     Route: 048
     Dates: start: 20191227
  2. CYTOTEC [Suspect]
     Active Substance: MISOPROSTOL
     Dosage: DAY 2: 2 TABLETS IN THE MORNING AND AT NOON
     Route: 048
     Dates: start: 20191228

REACTIONS (7)
  - Threatened uterine rupture [Unknown]
  - Postpartum stress disorder [Not Recovered/Not Resolved]
  - Feeling abnormal [Unknown]
  - Uterine tachysystole [Unknown]
  - Off label use [Unknown]
  - Labour pain [Unknown]
  - Product use in unapproved indication [Unknown]

NARRATIVE: CASE EVENT DATE: 201912
